FAERS Safety Report 23446080 (Version 3)
Quarter: 2024Q1

REPORT INFORMATION
  Report Type: Spontaneous
  Country: BR (occurrence: None)
  Receive Date: 20240126
  Receipt Date: 20240221
  Transmission Date: 20240410
  Serious: Yes (Other)
  Sender: FDA-Public Use
  Company Number: 2024A017299

PATIENT
  Sex: Female
  Weight: 68 kg

DRUGS (1)
  1. XIGDUO XR [Suspect]
     Active Substance: DAPAGLIFLOZIN PROPANEDIOL\METFORMIN HYDROCHLORIDE
     Indication: Diabetes mellitus
     Dosage: ONCE/SINGLE ADMINISTRATION
     Route: 048
     Dates: start: 20230419

REACTIONS (1)
  - Muscle atrophy [Not Recovered/Not Resolved]
